FAERS Safety Report 15654098 (Version 1)
Quarter: 2018Q4

REPORT INFORMATION
  Report Type: Spontaneous
  Country: US (occurrence: US)
  Receive Date: 20181125
  Receipt Date: 20181125
  Transmission Date: 20190205
  Serious: Yes (Disabling)
  Sender: FDA-Public Use
  Company Number: None

PATIENT
  Age: 58 Year
  Sex: Female
  Weight: 65.25 kg

DRUGS (2)
  1. LYRICA [Suspect]
     Active Substance: PREGABALIN
     Indication: COMPLEX REGIONAL PAIN SYNDROME
     Dosage: ?          OTHER STRENGTH:50MCG;QUANTITY:2 CAPSULE(S);?
     Route: 048
     Dates: start: 20121012, end: 20121017
  2. FLUTICASONE PROPIONATE NASALE SPRAY USP [Suspect]
     Active Substance: FLUTICASONE PROPIONATE
     Indication: SINUSITIS
     Dosage: ?          QUANTITY:120 SPRAY(S);OTHER ROUTE:NASAL SPRA?
     Dates: start: 20180701, end: 20180802

REACTIONS (7)
  - Hyperaesthesia [None]
  - Complex regional pain syndrome [None]
  - Visual field defect [None]
  - Photophobia [None]
  - Chemical burn [None]
  - Instillation site pain [None]
  - Vision blurred [None]

NARRATIVE: CASE EVENT DATE: 20121015
